FAERS Safety Report 4373769-2 (Version None)
Quarter: 2004Q2

REPORT INFORMATION
  Report Type: 
  Country: None (occurrence: None)
  Receive Date: 20040603
  Receipt Date: 20040524
  Transmission Date: 20050107
  Serious: Yes (Hospitalization)
  Sender: FDA-Public Use
  Company Number: K200400767

PATIENT
  Age: 74 Year
  Sex: Male

DRUGS (2)
  1. ALTACE [Suspect]
     Dosage: 1 U, QD, ORAL
     Route: 048
  2. ALDACTONE [Suspect]
     Dosage: QD, ORAL
     Route: 048

REACTIONS (3)
  - CARDIAC FAILURE [None]
  - HYPERKALAEMIA [None]
  - RENAL FAILURE [None]
